FAERS Safety Report 17657402 (Version 1)
Quarter: 2020Q2

REPORT INFORMATION
  Report Type: Spontaneous
  Country: IN (occurrence: CN)
  Receive Date: 20200410
  Receipt Date: 20200410
  Transmission Date: 20200713
  Serious: Yes (Life-Threatening, Hospitalization, Other)
  Sender: FDA-Public Use
  Company Number: CN-ELI_LILLY_AND_COMPANY-CN202004002465

PATIENT
  Age: 27 Year
  Sex: Female

DRUGS (11)
  1. CISPLATIN. [Suspect]
     Active Substance: CISPLATIN
     Indication: SKIN ANGIOSARCOMA
     Dosage: ON THE SECOND DAY
     Route: 042
     Dates: start: 20160726
  2. GEMCITABINE HYDROCHLORIDE. [Suspect]
     Active Substance: GEMCITABINE HYDROCHLORIDE
     Indication: METASTASES TO LUNG
  3. MORPHINE SULFATE. [Concomitant]
     Active Substance: MORPHINE SULFATE
     Indication: PAIN IN EXTREMITY
     Dosage: SUSTAINED-RELEASE
     Route: 065
  4. GEMCITABINE HYDROCHLORIDE. [Suspect]
     Active Substance: GEMCITABINE HYDROCHLORIDE
     Indication: SKIN ANGIOSARCOMA
     Dosage: ON THE FIRST AND EIGHTH DAYS
     Route: 042
     Dates: start: 20160725
  5. CISPLATIN. [Suspect]
     Active Substance: CISPLATIN
     Indication: METASTASES TO LUNG
  6. APATINIB [Suspect]
     Active Substance: APATINIB
     Indication: SKIN ANGIOSARCOMA
  7. CISPLATIN. [Suspect]
     Active Substance: CISPLATIN
     Indication: METASTASES TO BONE
  8. APATINIB [Suspect]
     Active Substance: APATINIB
     Indication: METASTASES TO BONE
  9. MORPHINE SULFATE. [Concomitant]
     Active Substance: MORPHINE SULFATE
     Indication: GAIT INABILITY
     Dosage: SUSTAINED-RELEASE
     Route: 065
  10. GEMCITABINE HYDROCHLORIDE. [Suspect]
     Active Substance: GEMCITABINE HYDROCHLORIDE
     Indication: METASTASES TO BONE
  11. APATINIB [Suspect]
     Active Substance: APATINIB
     Indication: METASTASES TO LUNG
     Dosage: ON THE FIRST AND EIGHTH DAYS
     Route: 048
     Dates: start: 20160725

REACTIONS (5)
  - Thrombocytopenia [Unknown]
  - Bone marrow failure [Unknown]
  - Night sweats [Recovered/Resolved]
  - Decreased appetite [Recovered/Resolved]
  - Asthenia [Recovered/Resolved]

NARRATIVE: CASE EVENT DATE: 2016
